FAERS Safety Report 12689960 (Version 1)
Quarter: 2016Q3

REPORT INFORMATION
  Report Type: Spontaneous
  Country: FR (occurrence: FR)
  Receive Date: 20160826
  Receipt Date: 20160826
  Transmission Date: 20161109
  Serious: Yes (Death, Hospitalization)
  Sender: FDA-Public Use
  Company Number: FR-TEVA-686575ROM

PATIENT
  Age: 63 Year
  Sex: Male
  Weight: 76 kg

DRUGS (13)
  1. CORTANCYL [Suspect]
     Active Substance: PREDNISONE
     Dosage: CHOEP 21 PROTOCOL, DAY 4 AND DAY 5
     Route: 048
     Dates: start: 20160109, end: 20160110
  2. GRANOCYTE [Concomitant]
     Active Substance: LENOGRASTIM
     Dosage: CHOEP 21 PROTOCOL, DAY 6 TO DAY 12
     Dates: start: 20160111, end: 20160117
  3. VINCRISTINE HOSPIRA 2 MG/2 ML [Suspect]
     Active Substance: VINCRISTINE
     Dosage: CHOEP 21 PROTOCOL, DAY 1
     Route: 041
     Dates: start: 20160106, end: 20160106
  4. LEDERFOLINE [Concomitant]
     Active Substance: LEUCOVORIN CALCIUM
     Indication: PROPHYLAXIS
     Dosage: 3.5714 MILLIGRAM DAILY;
     Route: 048
  5. ZYLORIC [Concomitant]
     Active Substance: ALLOPURINOL
     Indication: PROPHYLAXIS
     Dosage: 200 MILLIGRAM DAILY;
     Route: 048
  6. ONDANSETRON ACCORD 2 MG/ML [Concomitant]
     Active Substance: ONDANSETRON
     Dosage: CHOEP 21 PROTOCOL, DAY 1, DAY 2 AND DAY 3
     Route: 041
     Dates: start: 20160106, end: 20160108
  7. DOXORUBICINE TEVA 200 MG/100 ML [Suspect]
     Active Substance: DOXORUBICIN
     Dosage: CHOEP 21 PROTOCOL, DAY 1
     Route: 041
     Dates: start: 20160106, end: 20160106
  8. BACTRIM [Concomitant]
     Active Substance: SULFAMETHOXAZOLE\TRIMETHOPRIM
     Indication: PROPHYLAXIS
     Dosage: 3.5714 MILLIGRAM DAILY;
     Route: 048
  9. ENDOXAN 1000 MG [Suspect]
     Active Substance: CYCLOPHOSPHAMIDE
     Dosage: CHOEP 21 PROTOCOL, DAY 1
     Route: 041
     Dates: start: 20160106, end: 20160106
  10. METHYLPREDNISOLONE MYLAN [Suspect]
     Active Substance: METHYLPREDNISOLONE
     Dosage: CHOEP 21 PROTOCOL, DAY 1, DAY 2 AND DAY 3
     Route: 041
     Dates: start: 20160106, end: 20160108
  11. METHOTREXATE. [Suspect]
     Active Substance: METHOTREXATE
     Dosage: CHOEP 21 PROTOCOL, DAY 1
     Route: 037
     Dates: start: 20160106, end: 20160106
  12. ETOPOSIDE TEVA 20 MG/ML [Suspect]
     Active Substance: ETOPOSIDE
     Dosage: CHOEP 21 PROTOCOL, DAY 2 AND DAY 3
     Route: 041
     Dates: start: 20160107, end: 20160108
  13. ZELITREX [Concomitant]
     Active Substance: VALACYCLOVIR HYDROCHLORIDE
     Indication: PROPHYLAXIS
     Dosage: 1000 MILLIGRAM DAILY;
     Route: 048

REACTIONS (3)
  - Septic shock [Fatal]
  - Febrile bone marrow aplasia [Fatal]
  - Acute kidney injury [Fatal]

NARRATIVE: CASE EVENT DATE: 20160116
